FAERS Safety Report 8444316-0 (Version None)
Quarter: 2012Q2

REPORT INFORMATION
  Report Type: 
  Country: None (occurrence: None)
  Receive Date: 20120618
  Receipt Date: 20120607
  Transmission Date: 20120825
  Serious: Yes (Other)
  Sender: FDA-Public Use
  Company Number: JP-PFIZER INC-2012136405

PATIENT
  Age: 11 Year
  Sex: Female

DRUGS (3)
  1. SULFAMETHOXAZOLE AND TRIMETHOPRIM [Suspect]
     Indication: PROPHYLAXIS
     Dosage: UNK
     Route: 048
  2. SOLU-MEDROL [Suspect]
     Indication: GLOMERULONEPHRITIS RAPIDLY PROGRESSIVE
     Route: 042
  3. CYCLOPHOSPHAMIDE [Suspect]
     Indication: GLOMERULONEPHRITIS RAPIDLY PROGRESSIVE

REACTIONS (1)
  - CLOSTRIDIUM DIFFICILE COLITIS [None]
